FAERS Safety Report 6176926-8 (Version None)
Quarter: 2009Q2

REPORT INFORMATION
  Report Type: 
  Country: None (occurrence: None)
  Receive Date: 20090501
  Receipt Date: 20090107
  Transmission Date: 20091009
  Serious: Yes (Death, Hospitalization)
  Sender: FDA-Public Use
  Company Number: US-ALEXION-A200900006

PATIENT
  Sex: Male

DRUGS (13)
  1. SOLIRIS [Suspect]
     Indication: PAROXYSMAL NOCTURNAL HAEMOGLOBINURIA
     Dosage: 600 MG, QW
     Route: 042
     Dates: start: 20080319, end: 20080409
  2. SOLIRIS [Suspect]
     Dosage: 900 MG, Q2W
     Route: 042
     Dates: start: 20080416, end: 20081217
  3. MORPHINE [Concomitant]
     Dosage: UNK
  4. MORPHINE [Concomitant]
     Dosage: UNK
  5. NEUPOGEN [Concomitant]
  6. CAMPATH [Concomitant]
  7. KEPPRA [Concomitant]
  8. BACTRIM [Concomitant]
  9. LOVENOX [Concomitant]
     Indication: EMBOLISM
  10. INSULIN [Concomitant]
     Indication: DIABETES MELLITUS
  11. DOXYCYCLINE [Concomitant]
  12. ZOVIRAX                            /00587301/ [Concomitant]
     Indication: PROPHYLAXIS
  13. FOLIC ACID [Concomitant]

REACTIONS (6)
  - BRAIN NEOPLASM [None]
  - CONVULSION [None]
  - DEPRESSED LEVEL OF CONSCIOUSNESS [None]
  - LYMPHOMA [None]
  - STOMATITIS [None]
  - SWELLING FACE [None]
